FAERS Safety Report 4684821-6 (Version None)
Quarter: 2005Q2

REPORT INFORMATION
  Report Type: 
  Country: None (occurrence: None)
  Receive Date: 20050606
  Receipt Date: 20050405
  Transmission Date: 20051028
  Serious: Yes (Other)
  Sender: FDA-Public Use
  Company Number: USA050394390

PATIENT
  Age: 77 Year
  Sex: Female
  Weight: 49 kg

DRUGS (12)
  1. ALIMTA [Suspect]
     Indication: NON-SMALL CELL LUNG CANCER
     Dosage: 700 MG
     Dates: start: 20050202
  2. VITAMIN B-12 [Concomitant]
  3. FOLIC ACID [Concomitant]
  4. CORTICOSTEROID NOS [Concomitant]
  5. ZOMETA [Concomitant]
  6. NIFEDIPINE ^GENERICS UK^ (NIFEDIPINE PA) [Concomitant]
  7. KCL (POTASSIUM CHLORIDE) [Concomitant]
  8. FUROSEMIDE [Concomitant]
  9. RELAFEN [Concomitant]
  10. OXYCODONE HCL [Concomitant]
  11. ORAMORPH SR [Concomitant]
  12. KYTRILL (GRANISETRON) [Concomitant]

REACTIONS (2)
  - HAEMATOCRIT DECREASED [None]
  - HAEMOGLOBIN DECREASED [None]
